FAERS Safety Report 9030535 (Version 2)
Quarter: 2013Q1

REPORT INFORMATION
  Report Type: Spontaneous
  Country: JP (occurrence: JP)
  Receive Date: 20130122
  Receipt Date: 20130213
  Transmission Date: 20140127
  Serious: Yes (Hospitalization, Other)
  Sender: FDA-Public Use
  Company Number: JP-PFIZER INC-2013022513

PATIENT
  Age: 79 Year
  Sex: Male

DRUGS (12)
  1. UNASYN-S [Suspect]
     Indication: PNEUMONIA
     Dosage: 3 G, 2X/DAY
     Route: 041
     Dates: start: 20121221, end: 20121226
  2. MINOMYCIN [Suspect]
     Indication: PNEUMONIA
     Dosage: 100 G, 2X/DAY
     Route: 041
     Dates: start: 20121217, end: 20121221
  3. CLARITHROMYCIN [Suspect]
     Indication: PNEUMONIA
     Dosage: 200 MG, 2X/DAY
     Route: 048
     Dates: start: 20121221, end: 20121226
  4. ROCEPHIN [Suspect]
     Indication: PNEUMONIA
     Dosage: 2 G, 1X/DAY
     Route: 041
     Dates: start: 20121217, end: 20121221
  5. CRAVIT [Suspect]
     Indication: PNEUMONIA
     Dosage: 500 MG, 1X/DAY
     Route: 048
     Dates: start: 20121217, end: 20121221
  6. ZESULAN [Suspect]
     Indication: COUGH
     Dosage: 3 MG, 3X/DAY
     Route: 048
     Dates: start: 20121207, end: 20121226
  7. ZESULAN [Suspect]
     Indication: RHINORRHOEA
  8. AMLODIN [Concomitant]
     Indication: HYPERTENSION
     Dosage: 2.5 MG, 1X/DAY
     Route: 048
  9. LUPRAC [Concomitant]
     Indication: HYPERTENSION
     Dosage: 4 MG, 1X/DAY
     Route: 048
  10. GASTER [Concomitant]
     Indication: GASTRITIS
     Dosage: 20 MG, 1X/DAY
     Route: 048
  11. MUCOSOLVAN [Concomitant]
     Indication: PRODUCTIVE COUGH
     Dosage: 15 MG, 3X/DAY
     Route: 048
     Dates: start: 20121207
  12. GRACEVIT [Concomitant]
     Indication: PNEUMONIA
     Dosage: 50 MG, 3X/DAY
     Route: 048
     Dates: start: 20121207, end: 20121216

REACTIONS (1)
  - Interstitial lung disease [Recovered/Resolved with Sequelae]
